FAERS Safety Report 26114014 (Version 1)
Quarter: 2025Q4

REPORT INFORMATION
  Report Type: Report from Study
  Country: US (occurrence: None)
  Receive Date: 20251202
  Receipt Date: 20251202
  Transmission Date: 20260118
  Serious: Yes (Hospitalization, Other)
  Sender: UCB
  Company Number: US-UCBSA-2025067355

PATIENT
  Age: 15 Year
  Weight: 49.1 kg

DRUGS (3)
  1. FENFLURAMINE [Suspect]
     Active Substance: FENFLURAMINE
     Indication: Lennox-Gastaut syndrome
     Dosage: 3.7 ML ONCE DAILY IN THE MORNING AND 5 ML ONCE DAILY IN THE EVENING
  2. FENFLURAMINE [Suspect]
     Active Substance: FENFLURAMINE
     Dosage: 3.8 MILLILITER, 2X/DAY (BID)
  3. FENFLURAMINE [Suspect]
     Active Substance: FENFLURAMINE
     Dosage: 16.72 MILLIGRAM PER DAY

REACTIONS (12)
  - Seizure [Not Recovered/Not Resolved]
  - Hospitalisation [Not Recovered/Not Resolved]
  - Infantile spasms [Not Recovered/Not Resolved]
  - Restlessness [Recovering/Resolving]
  - Agitation [Recovering/Resolving]
  - Obsessive-compulsive disorder [Recovering/Resolving]
  - Bite [Recovering/Resolving]
  - Head injury [Recovering/Resolving]
  - Behaviour disorder [Not Recovered/Not Resolved]
  - Myoclonus [Not Recovered/Not Resolved]
  - Sleep disorder [Not Recovered/Not Resolved]
  - Product use issue [Unknown]
